FAERS Safety Report 16383313 (Version 6)
Quarter: 2019Q4

REPORT INFORMATION
  Report Type: Spontaneous
  Country: US (occurrence: US)
  Receive Date: 20190603
  Receipt Date: 20191015
  Transmission Date: 20200122
  Serious: Yes (Disabling, Other)
  Sender: FDA-Public Use
  Company Number: US-PFIZER INC-2019230598

PATIENT
  Age: 60 Year
  Sex: Female
  Weight: 83.1 kg

DRUGS (10)
  1. RITONAVIR. [Concomitant]
     Active Substance: RITONAVIR
     Indication: HIV INFECTION
     Dosage: 100 MG, DAILY
     Route: 048
  2. REYATAZ [Concomitant]
     Active Substance: ATAZANAVIR SULFATE
     Indication: HIV INFECTION
     Dosage: 300 MG, DAILY
  3. ATAZANAVIR SULFATE. [Concomitant]
     Active Substance: ATAZANAVIR SULFATE
     Indication: HIV INFECTION
  4. TRUVADA [Concomitant]
     Active Substance: EMTRICITABINE\TENOFOVIR DISOPROXIL FUMARATE
     Indication: HIV TEST
  5. RITONAVIR. [Concomitant]
     Active Substance: RITONAVIR
     Indication: HIV TEST
  6. LYRICA [Suspect]
     Active Substance: PREGABALIN
     Indication: POST HERPETIC NEURALGIA
     Dosage: 75 MG, THREE TIMES A DAY
     Dates: start: 2018
  7. TRUVADA [Concomitant]
     Active Substance: EMTRICITABINE\TENOFOVIR DISOPROXIL FUMARATE
     Indication: HIV INFECTION
     Dosage: UNK, 1X/DAY (IT SAYS 200 MG/300 MG)
     Route: 048
  8. REYATAZ [Concomitant]
     Active Substance: ATAZANAVIR SULFATE
     Indication: HIV TEST
  9. LYRICA [Suspect]
     Active Substance: PREGABALIN
     Dosage: 150 MG, TWICE A DAY
     Route: 048
  10. ATAZANAVIR SULFATE. [Concomitant]
     Active Substance: ATAZANAVIR SULFATE
     Indication: HIV TEST
     Dosage: 300 MG, UNK (BY MOUTH WITH BREAKFAST)
     Route: 048

REACTIONS (9)
  - Pain [Not Recovered/Not Resolved]
  - Feeling abnormal [Unknown]
  - Intentional product misuse [Unknown]
  - Eating disorder [Unknown]
  - Condition aggravated [Not Recovered/Not Resolved]
  - Amnesia [Not Recovered/Not Resolved]
  - Confusional state [Unknown]
  - Dizziness [Unknown]
  - Weight decreased [Unknown]

NARRATIVE: CASE EVENT DATE: 2018
